FAERS Safety Report 16121848 (Version 2)
Quarter: 2019Q3

REPORT INFORMATION
  Report Type: Report from Study
  Country: None (occurrence: US)
  Receive Date: 20190327
  Receipt Date: 20190828
  Transmission Date: 20191004
  Serious: Yes (Other)
  Sender: FDA-Public Use
  Company Number: US-ABBVIE-19K-163-2714867-00

PATIENT
  Age: 56 Year
  Sex: Female
  Weight: 124.85 kg

DRUGS (1)
  1. HUMIRA [Suspect]
     Active Substance: ADALIMUMAB
     Indication: PSORIATIC ARTHROPATHY
     Route: 058

REACTIONS (5)
  - Infection [Not Recovered/Not Resolved]
  - Nasopharyngitis [Recovering/Resolving]
  - Brain injury [Unknown]
  - Neuropathy peripheral [Unknown]
  - Enlarged cerebral perivascular spaces [Unknown]

NARRATIVE: CASE EVENT DATE: 20170711
